FAERS Safety Report 4264604-1 (Version None)
Quarter: 2004Q1

REPORT INFORMATION
  Report Type: 
  Country: None (occurrence: None)
  Receive Date: 20040106
  Receipt Date: 20031208
  Transmission Date: 20041129
  Serious: Yes (Disabling)
  Sender: FDA-Public Use
  Company Number: GB-ROCHE-354567

PATIENT
  Age: 69 Year
  Sex: Male

DRUGS (8)
  1. NEOTIGASON [Suspect]
     Route: 048
     Dates: start: 20030715, end: 20030819
  2. NEOTIGASON [Suspect]
     Route: 048
     Dates: start: 20030819, end: 20031025
  3. NEORAL [Concomitant]
     Indication: HEART TRANSPLANT
     Route: 048
     Dates: start: 19940615
  4. AZATHIOPRINE [Concomitant]
     Indication: HEART TRANSPLANT
     Route: 048
     Dates: start: 19940615
  5. LIPOSTAT [Concomitant]
     Indication: HEART TRANSPLANT
     Route: 048
     Dates: start: 19940615
  6. DILTIAZEM [Concomitant]
     Route: 048
     Dates: start: 19940615
  7. RANITIDINE [Concomitant]
     Dates: start: 19940615
  8. ASPIRIN [Concomitant]
     Dates: start: 19940615

REACTIONS (2)
  - AGEUSIA [None]
  - ANOSMIA [None]
